FAERS Safety Report 8313365-5 (Version None)
Quarter: 2012Q2

REPORT INFORMATION
  Report Type: 
  Country: None (occurrence: None)
  Receive Date: 20120426
  Receipt Date: 20120419
  Transmission Date: 20120825
  Serious: Yes (Other)
  Sender: FDA-Public Use
  Company Number: PHHY2012BR025617

PATIENT
  Sex: Male

DRUGS (2)
  1. EXFORGE [Suspect]
     Dosage: 1 DF (160/5 MG), UNK
  2. EXFORGE [Suspect]
     Dosage: 1 DF (320/5 MG), UNK

REACTIONS (1)
  - ANGINA PECTORIS [None]
